FAERS Safety Report 9748872 (Version 3)
Quarter: 2014Q2

REPORT INFORMATION
  Report Type: Spontaneous
  Country: US (occurrence: US)
  Receive Date: 20131212
  Receipt Date: 20140611
  Transmission Date: 20141212
  Serious: No
  Sender: FDA-Public Use
  Company Number: US-INCYTE CORPORATION-2013IN001453

PATIENT
  Age: 80 Year
  Sex: Male

DRUGS (2)
  1. JAKAFI [Suspect]
     Indication: MYELOFIBROSIS
     Dosage: 20 MG, BID
     Route: 048
     Dates: start: 20130413
  2. JAKAFI [Suspect]
     Dosage: 20 MG, QD
     Route: 048

REACTIONS (2)
  - Diarrhoea [Unknown]
  - Dyspnoea [Unknown]
